FAERS Safety Report 9349421 (Version 1)
Quarter: 2013Q2

REPORT INFORMATION
  Report Type: Spontaneous
  Country: KR (occurrence: KR)
  Receive Date: 20130614
  Receipt Date: 20130614
  Transmission Date: 20140414
  Serious: Yes (Death)
  Sender: FDA-Public Use
  Company Number: KR-BAXTER-2013BAX021761

PATIENT
  Sex: 0

DRUGS (7)
  1. ENDOXAN INJ 500MG [Suspect]
     Indication: APLASTIC ANAEMIA
     Route: 065
  2. FLUDARABINE [Suspect]
     Indication: APLASTIC ANAEMIA
     Route: 065
  3. ANTITHYMOCYTE IMMUNOGLOBULIN (RABBIT) [Suspect]
     Indication: APLASTIC ANAEMIA
     Route: 065
  4. CYCLOSPORINE [Concomitant]
     Indication: PROPHYLAXIS AGAINST GRAFT VERSUS HOST DISEASE
     Route: 042
  5. CYCLOSPORINE [Concomitant]
     Route: 048
  6. CYCLOSPORINE [Concomitant]
     Dosage: 100-200 NG/ML
  7. METHOTREXATE [Concomitant]
     Indication: PROPHYLAXIS AGAINST GRAFT VERSUS HOST DISEASE

REACTIONS (1)
  - Sepsis [Fatal]
